FAERS Safety Report 6769345-4 (Version None)
Quarter: 2010Q2

REPORT INFORMATION
  Report Type: 
  Country: None (occurrence: None)
  Receive Date: 20100615
  Receipt Date: 20100601
  Transmission Date: 20101027
  Serious: Yes (Death, Other)
  Sender: FDA-Public Use
  Company Number: AT-CELGENEUS-009-21880-10061099

PATIENT
  Age: 56 Year
  Sex: Male

DRUGS (5)
  1. REVLIMID [Suspect]
     Indication: MULTIPLE MYELOMA
     Route: 048
     Dates: start: 20071101, end: 20080101
  2. REVLIMID [Suspect]
     Route: 048
     Dates: start: 20080801
  3. REVLIMID [Suspect]
     Route: 048
     Dates: start: 20090601, end: 20090901
  4. MELPHALAN HYDROCHLORIDE [Concomitant]
     Indication: MULTIPLE MYELOMA
     Route: 065
     Dates: start: 20090601, end: 20090901
  5. PREDNISONE [Concomitant]
     Indication: MULTIPLE MYELOMA
     Route: 065
     Dates: start: 20090601, end: 20090901

REACTIONS (6)
  - DISEASE PROGRESSION [None]
  - LEUKOPENIA [None]
  - PANCYTOPENIA [None]
  - SEPSIS [None]
  - SPINAL FRACTURE [None]
  - THROMBOCYTOPENIA [None]
